FAERS Safety Report 6644340-4 (Version None)
Quarter: 2010Q1

REPORT INFORMATION
  Report Type: 
  Country: None (occurrence: None)
  Receive Date: 20100322
  Receipt Date: 20100312
  Transmission Date: 20100710
  Serious: Yes (Disabling)
  Sender: FDA-Public Use
  Company Number: PHHY2010US15734

PATIENT
  Sex: Female

DRUGS (3)
  1. LAMISIL [Suspect]
     Indication: ONYCHOMYCOSIS
     Dosage: UNK
  2. LAMOTRIGINE [Suspect]
     Dosage: 250 MG PER DAY
     Route: 048
     Dates: start: 20100216
  3. IBUPROFEN [Concomitant]

REACTIONS (7)
  - DRUG DISPENSING ERROR [None]
  - FATIGUE [None]
  - HEADACHE [None]
  - LYMPHADENOPATHY [None]
  - MYALGIA [None]
  - NAUSEA [None]
  - RASH [None]
